FAERS Safety Report 15936358 (Version 3)
Quarter: 2020Q1

REPORT INFORMATION
  Report Type: Spontaneous
  Country: US (occurrence: US)
  Receive Date: 20190208
  Receipt Date: 20200323
  Transmission Date: 20200409
  Serious: Yes (Death, Hospitalization, Other)
  Sender: FDA-Public Use
  Company Number: US-BRISTOL-MYERS SQUIBB COMPANY-BMS-2019-010779

PATIENT
  Age: 34 Year
  Sex: Male
  Weight: 86.36 kg

DRUGS (6)
  1. OPDIVO [Suspect]
     Active Substance: NIVOLUMAB
     Indication: LUNG NEOPLASM MALIGNANT
     Dosage: 272 MG, Q3WK
     Route: 042
     Dates: start: 20181212
  2. OPDIVO [Suspect]
     Active Substance: NIVOLUMAB
     Indication: BONE NEOPLASM
     Route: 065
  3. YERVOY [Suspect]
     Active Substance: IPILIMUMAB
     Indication: BONE NEOPLASM
     Route: 065
  4. PROCHLORPERAZINE. [Concomitant]
     Active Substance: PROCHLORPERAZINE
     Indication: PRODUCT USED FOR UNKNOWN INDICATION
     Dosage: UNK
     Route: 065
  5. ZOFRAN [Concomitant]
     Active Substance: ONDANSETRON HYDROCHLORIDE
     Indication: PRODUCT USED FOR UNKNOWN INDICATION
     Dosage: UNK
     Route: 065
  6. YERVOY [Suspect]
     Active Substance: IPILIMUMAB
     Indication: LUNG NEOPLASM MALIGNANT
     Dosage: 91 MG, Q3WK
     Route: 042
     Dates: start: 20181212

REACTIONS (3)
  - Intentional product use issue [Unknown]
  - Malignant neoplasm progression [Fatal]
  - Pneumonia [Unknown]

NARRATIVE: CASE EVENT DATE: 20190118
